FAERS Safety Report 5720591-8 (Version None)
Quarter: 2008Q2

REPORT INFORMATION
  Report Type: 
  Country: None (occurrence: None)
  Receive Date: 20080428
  Receipt Date: 20080428
  Transmission Date: 20081010
  Serious: Yes (Other)
  Sender: FDA-Public Use
  Company Number: None

PATIENT
  Age: 61 Year
  Sex: Female
  Weight: 54.4316 kg

DRUGS (1)
  1. DIGITEK 0.125MG UDL [Suspect]
     Indication: CARDIAC OPERATION
     Dosage: ONE TABLET DAILY PO  (ACTUALLY BEGAN IN 1980)
     Route: 048
     Dates: start: 19850601, end: 20080426

REACTIONS (9)
  - ABASIA [None]
  - ASTHENIA [None]
  - CONFUSIONAL STATE [None]
  - FEELING COLD [None]
  - HEART RATE DECREASED [None]
  - HYPERSOMNIA [None]
  - LETHARGY [None]
  - PHARMACEUTICAL PRODUCT COMPLAINT [None]
  - POOR QUALITY DRUG ADMINISTERED [None]
